FAERS Safety Report 19350682 (Version 4)
Quarter: 2022Q3

REPORT INFORMATION
  Report Type: Report from Study
  Country: ES (occurrence: None)
  Receive Date: 20210531
  Receipt Date: 20220804
  Transmission Date: 20221027
  Serious: Yes (Other)
  Sender: FDA-Public Use
  Company Number: ES-ROCHE-2823358

PATIENT
  Age: 75 Year
  Sex: Female
  Weight: 46.5 kg

DRUGS (13)
  1. COBIMETINIB [Suspect]
     Active Substance: COBIMETINIB
     Indication: Ovarian cancer recurrent
     Dosage: ON 27/APR/2021, SHE RECIEVED THE MOST RECENT DOSE OF COBIMETINIB (60 MG) PRIOR TO AE/SAE?ON 25/MAY/2
     Route: 048
     Dates: start: 20210317
  2. ATEZOLIZUMAB [Suspect]
     Active Substance: ATEZOLIZUMAB
     Indication: Ovarian cancer recurrent
     Dosage: ON 28/APR/2021, SHE RECIEVED THE MOST RECENT DOSE OF ATEZOLIZUMAB (840 MG) PRIOR TO AE/SAE?ON 13/MAY
     Route: 041
     Dates: start: 20210317
  3. NIRAPARIB [Suspect]
     Active Substance: NIRAPARIB
     Indication: Ovarian cancer recurrent
     Dosage: ON 28/APR/2021, SHE RECIEVED THE MOST RECENT DOSE OF NIRAPARIB (200 MG) PRIOR TO AE/SAE?ON 25/MAY/20
     Route: 048
     Dates: start: 20210317
  4. SPIRONOLACTONE [Concomitant]
     Active Substance: SPIRONOLACTONE
     Indication: Pyrexia
     Route: 048
     Dates: start: 20210412
  5. CLINDAMYCIN [Concomitant]
     Active Substance: CLINDAMYCIN
     Indication: Dermatitis acneiform
     Dosage: 1 OTHER
     Route: 061
     Dates: start: 20210329, end: 20210426
  6. FUROSEMIDE [Concomitant]
     Active Substance: FUROSEMIDE
     Indication: Oedema peripheral
     Route: 048
     Dates: start: 20210429, end: 20210509
  7. OMEPRAZOLE [Concomitant]
     Active Substance: OMEPRAZOLE
     Indication: Gastrointestinal disorder prophylaxis
     Dosage: GIVEN FOR PROPHYLAXIS
     Route: 048
     Dates: start: 202002
  8. ENOXAPARIN [Concomitant]
     Active Substance: ENOXAPARIN
     Indication: Atrial fibrillation
     Route: 058
     Dates: start: 201907
  9. SIMVASTATIN [Concomitant]
     Active Substance: SIMVASTATIN
     Indication: Hypercholesterolaemia
     Route: 048
     Dates: start: 20160202
  10. EBASTINE [Concomitant]
     Active Substance: EBASTINE
     Indication: Dermatitis acneiform
     Route: 048
     Dates: start: 20210331
  11. BETAHISTINE [Concomitant]
     Active Substance: BETAHISTINE
     Indication: Dizziness
     Route: 048
     Dates: start: 20210219, end: 20210407
  12. NISTATIN [Concomitant]
     Active Substance: NYSTATIN
     Indication: Stomatitis
     Route: 048
     Dates: start: 20210412
  13. NAPROXEN [Concomitant]
     Active Substance: NAPROXEN
     Indication: Pyrexia
     Route: 048
     Dates: start: 20210412

REACTIONS (2)
  - Anaemia [Recovered/Resolved]
  - Rash maculo-papular [Recovered/Resolved]

NARRATIVE: CASE EVENT DATE: 20210429
